FAERS Safety Report 19486096 (Version 1)
Quarter: 2021Q3

REPORT INFORMATION
  Report Type: Spontaneous
  Country: US (occurrence: US)
  Receive Date: 20210702
  Receipt Date: 20210702
  Transmission Date: 20211014
  Serious: Yes (Other)
  Sender: FDA-Public Use
  Company Number: US-DRREDDYS-SPO/USA/21/0137099

PATIENT
  Age: 26 Year
  Sex: Female

DRUGS (1)
  1. ZIPRASIDONE CAPSULES [Suspect]
     Active Substance: ZIPRASIDONE
     Indication: PSYCHOTIC DISORDER
     Route: 048

REACTIONS (5)
  - Condition aggravated [Unknown]
  - Palpitations [Unknown]
  - Dyspnoea [Unknown]
  - Electrocardiogram QT prolonged [Unknown]
  - Hypertension [Unknown]
